FAERS Safety Report 4558413-3 (Version None)
Quarter: 2005Q1

REPORT INFORMATION
  Report Type: 
  Country: None (occurrence: None)
  Receive Date: 20050121
  Receipt Date: 20050114
  Transmission Date: 20050727
  Serious: Yes (Hospitalization)
  Sender: FDA-Public Use
  Company Number: PHBS2005CA01010

PATIENT
  Age: 46 Year
  Sex: Female

DRUGS (7)
  1. SERTRALINE HCL [Suspect]
     Dosage: 150 MG/D
     Route: 065
  2. TRAZODONE HCL [Concomitant]
     Dosage: 50 MG/D
     Route: 065
  3. CLONAZEPAM [Concomitant]
     Route: 065
  4. ALBUTEROL [Concomitant]
     Route: 065
  5. DEXTROMETHORPHAN HYDROBROMIDE [Concomitant]
     Route: 065
  6. THIORIDAZINE HCL [Suspect]
     Route: 065
  7. COLD THERAPY, LOCAL [Suspect]

REACTIONS (7)
  - ANEURYSM [None]
  - BALINT'S SYNDROME [None]
  - BLINDNESS [None]
  - DYSARTHRIA [None]
  - HEADACHE [None]
  - ISCHAEMIC STROKE [None]
  - VASOCONSTRICTION [None]
